FAERS Safety Report 17976168 (Version 3)
Quarter: 2020Q3

REPORT INFORMATION
  Report Type: Report from Study
  Country: None (occurrence: RO)
  Receive Date: 20200702
  Receipt Date: 20200802
  Transmission Date: 20201103
  Serious: Yes (Death, Hospitalization, Other)
  Sender: FDA-Public Use
  Company Number: RO-ABBVIE-20K-135-3469292-00

PATIENT
  Age: 71 Year
  Sex: Female

DRUGS (6)
  1. DETRALEX [Concomitant]
     Active Substance: DIOSMIN\HESPERIDIN
     Indication: PERIPHERAL VENOUS DISEASE
     Route: 048
  2. DUODOPA [Suspect]
     Active Substance: CARBIDOPA\LEVODOPA
     Indication: PARKINSON^S DISEASE
     Dosage: DM=8.00??DC=6.80??ED=5.00??NRED=1;??DMN=0.00??DCN=0.00??EDN=0.00??NREDN=0
     Route: 050
     Dates: start: 20131211, end: 20200705
  3. SELEGOS [Concomitant]
     Indication: PARKINSON^S DISEASE
     Route: 048
  4. DRIPTANE [Concomitant]
     Active Substance: OXYBUTYNIN
     Indication: URINARY INCONTINENCE
     Route: 048
  5. INDAPAMIDE. [Concomitant]
     Active Substance: INDAPAMIDE
     Indication: HYPERTENSION
     Route: 048
  6. DUODOPA [Suspect]
     Active Substance: CARBIDOPA\LEVODOPA

REACTIONS (8)
  - Cardio-respiratory arrest [Fatal]
  - Gastroenteritis clostridial [Fatal]
  - Coma [Unknown]
  - Hypotension [Recovering/Resolving]
  - Acute kidney injury [Fatal]
  - Dehydration [Recovering/Resolving]
  - Hyperthermia malignant [Fatal]
  - Diarrhoea [Recovering/Resolving]

NARRATIVE: CASE EVENT DATE: 20200701
